FAERS Safety Report 7834148-6 (Version None)
Quarter: 2011Q4

REPORT INFORMATION
  Report Type: 
  Country: None (occurrence: None)
  Receive Date: 20111024
  Receipt Date: 20111012
  Transmission Date: 20120403
  Serious: Yes (Hospitalization)
  Sender: FDA-Public Use
  Company Number: PHHY2010JP60520

PATIENT
  Age: 48 Year
  Sex: Male

DRUGS (6)
  1. CYCLOSPORINE [Suspect]
     Indication: PUSTULAR PSORIASIS
     Dosage: UNK UKN, UNK
     Dates: end: 20080901
  2. PREDNISOLONE [Concomitant]
     Dosage: 7.5 MG, QD
  3. METHYLPREDNISOLONE [Concomitant]
     Dosage: UNK UKN, UNK
     Route: 048
  4. PREDNISOLONE [Concomitant]
     Dosage: 1 MG/KG/DAY
  5. PUVA [Concomitant]
     Dosage: UNK UKN, UNK
  6. PREDNISOLONE [Concomitant]
     Dosage: UNK UKN, UNK
     Route: 048

REACTIONS (11)
  - ERYTHEMA [None]
  - PYREXIA [None]
  - TONSILLAR DISORDER [None]
  - RASH [None]
  - RENAL DISORDER [None]
  - PSORIASIS [None]
  - ULCER [None]
  - BLISTER [None]
  - CONCOMITANT DISEASE PROGRESSION [None]
  - RASH PUSTULAR [None]
  - SKIN EXFOLIATION [None]
